FAERS Safety Report 4282670-4 (Version None)
Quarter: 2004Q1

REPORT INFORMATION
  Report Type: 
  Country: None (occurrence: None)
  Receive Date: 20040130
  Receipt Date: 20030129
  Transmission Date: 20041129
  Serious: No
  Sender: FDA-Public Use
  Company Number: US-BRISTOL-MYERS SQUIBB COMPANY-12170635

PATIENT
  Age: 59 Year
  Sex: Female
  Weight: 70 kg

DRUGS (7)
  1. SERZONE [Suspect]
     Indication: DEPRESSION
     Dosage: TAKES 50 MG ONCE AT NIGHT
     Route: 048
     Dates: start: 20030126
  2. DIFLUNISAL [Concomitant]
  3. LASIX [Concomitant]
  4. DARVOCET [Concomitant]
  5. ALLEGRA [Concomitant]
  6. MULTIVITAMIN [Concomitant]
  7. ADDERALL 10 [Concomitant]

REACTIONS (1)
  - NASAL CONGESTION [None]
